FAERS Safety Report 6164198-X (Version None)
Quarter: 2009Q2

REPORT INFORMATION
  Report Type: 
  Country: None (occurrence: None)
  Receive Date: 20090422
  Receipt Date: 20090413
  Transmission Date: 20091009
  Serious: Yes (Life-Threatening, Other)
  Sender: FDA-Public Use
  Company Number: JP-SANOFI-SYNTHELABO-A01200902913

PATIENT
  Sex: Female

DRUGS (17)
  1. SOLU-MEDROL [Concomitant]
     Indication: HYPERSENSITIVITY
     Route: 042
     Dates: start: 20090204, end: 20090204
  2. CIPROXAN [Concomitant]
     Indication: INFECTION
     Route: 042
     Dates: start: 20090115, end: 20090218
  3. CIPROXAN [Concomitant]
     Indication: HYPERTHERMIA
     Route: 042
     Dates: start: 20090115, end: 20090218
  4. PREDOPA [Concomitant]
     Indication: SHOCK
     Route: 042
     Dates: start: 20090109, end: 20090112
  5. NEO-MINOPHAGEN C [Concomitant]
     Indication: HYPERSENSITIVITY
     Route: 042
     Dates: start: 20090204, end: 20090204
  6. FRESH FROZEN PLASMA [Concomitant]
     Route: 042
     Dates: start: 20090107, end: 20090204
  7. MEROPEN [Concomitant]
     Indication: INFECTION
     Route: 042
     Dates: start: 20090107, end: 20090213
  8. POLARAMINE [Concomitant]
     Indication: HYPERSENSITIVITY
     Route: 042
     Dates: start: 20090106, end: 20090204
  9. SAXIZON [Concomitant]
     Indication: HYPERSENSITIVITY
     Dates: start: 20090106, end: 20090106
  10. KYTRIL [Concomitant]
     Indication: PREMEDICATION
     Route: 042
     Dates: start: 20081007, end: 20090204
  11. DECADRON [Concomitant]
     Indication: PREMEDICATION
     Route: 042
     Dates: start: 20081007, end: 20090204
  12. AVASTIN [Concomitant]
     Indication: MALIGNANT ANORECTAL NEOPLASM
     Route: 042
     Dates: start: 20081007, end: 20090106
  13. LEVOFOLINATE [Concomitant]
     Indication: MALIGNANT ANORECTAL NEOPLASM
     Route: 042
     Dates: start: 20081007, end: 20090204
  14. ADALAT [Concomitant]
     Indication: HYPERTENSION
     Route: 048
     Dates: start: 20090204, end: 20090204
  15. FLUOROURACIL [Suspect]
     Indication: MALIGNANT ANORECTAL NEOPLASM
     Dosage: 250MG/BODY (223.2MG/M2) IN BOLUS THEN 2700MG/BODY/D1-2 (2410.7MG/M2/D1-2)
     Route: 040
     Dates: start: 20081215, end: 20081216
  16. FLUOROURACIL [Suspect]
     Dosage: 250MG/BODY (223.2MG/M2) IN BOLUS THEN 2700MG/BODY/D1-2 (2410.7MG/M2/D1-2)
     Route: 041
     Dates: start: 20081215, end: 20081216
  17. ELPLAT [Suspect]
     Indication: MALIGNANT ANORECTAL NEOPLASM
     Route: 042
     Dates: start: 20090106, end: 20090106

REACTIONS (5)
  - ANAEMIA [None]
  - DISSEMINATED INTRAVASCULAR COAGULATION [None]
  - HEPATIC FUNCTION ABNORMAL [None]
  - RENAL FAILURE ACUTE [None]
  - WHITE BLOOD CELL COUNT INCREASED [None]
